FAERS Safety Report 19131800 (Version 1)
Quarter: 2021Q2

REPORT INFORMATION
  Report Type: Spontaneous
  Country: FR (occurrence: FR)
  Receive Date: 20210414
  Receipt Date: 20210414
  Transmission Date: 20210717
  Serious: Yes (Other)
  Sender: FDA-Public Use
  Company Number: NVSC2021FR079437

PATIENT
  Age: 46 Year
  Sex: Male
  Weight: 53 kg

DRUGS (2)
  1. AMOXICILLINE ACIDE CLAVULANIQUE SANDOZ [Suspect]
     Active Substance: AMOXICILLIN\CLAVULANATE POTASSIUM
     Indication: PRODUCT USED FOR UNKNOWN INDICATION
     Dosage: 3 G, QD
     Route: 042
     Dates: start: 20210301, end: 20210305
  2. ANCOTIL [Suspect]
     Active Substance: FLUCYTOSINE
     Indication: NEUROCRYPTOCOCCOSIS
     Dosage: 5000 MG, QD
     Route: 042
     Dates: start: 20210210, end: 20210303

REACTIONS (1)
  - Hepatic cytolysis [Recovering/Resolving]

NARRATIVE: CASE EVENT DATE: 20210303
